FAERS Safety Report 11737295 (Version 1)
Quarter: 2015Q4

REPORT INFORMATION
  Report Type: Spontaneous
  Country: US (occurrence: US)
  Receive Date: 20151110
  Receipt Date: 20151110
  Transmission Date: 20160304
  Serious: No
  Sender: FDA-Public Use
  Company Number: US-ELI_LILLY_AND_COMPANY-US201203004904

PATIENT
  Age: 67 Year
  Sex: Female

DRUGS (3)
  1. VITAMIN D [Concomitant]
     Active Substance: CHOLECALCIFEROL
     Indication: VITAMIN D DECREASED
     Dosage: UNK, UNKNOWN
     Route: 065
  2. ASPIRIN. [Concomitant]
     Active Substance: ASPIRIN
     Dosage: 81 MG, QD
     Route: 065
  3. FORTEO [Suspect]
     Active Substance: TERIPARATIDE
     Indication: VITAMIN D DECREASED
     Dosage: 20 UG, QD
     Route: 065

REACTIONS (5)
  - Off label use [Unknown]
  - Contusion [Unknown]
  - Injection site pain [Unknown]
  - Drug dose omission [Unknown]
  - Burning sensation [Unknown]

NARRATIVE: CASE EVENT DATE: 20120301
